FAERS Safety Report 8466475-6 (Version None)
Quarter: 2012Q2

REPORT INFORMATION
  Report Type: 
  Country: None (occurrence: None)
  Receive Date: 20120626
  Receipt Date: 20120621
  Transmission Date: 20120825
  Serious: Yes (Other)
  Sender: FDA-Public Use
  Company Number: PHHY2012FR021225

PATIENT
  Age: 60 Year
  Sex: Female

DRUGS (3)
  1. LIPANOR [Concomitant]
     Indication: DYSLIPIDAEMIA
  2. ATENOLOL [Suspect]
     Indication: HYPERTENSION
     Dosage: 100 MG, QD
     Route: 048
  3. ALDACTAZINE [Concomitant]
     Indication: HYPERTENSION

REACTIONS (8)
  - PARAESTHESIA [None]
  - SKIN LESION [None]
  - FEELING ABNORMAL [None]
  - ARTHRALGIA [None]
  - RASH [None]
  - LUPUS-LIKE SYNDROME [None]
  - WEIGHT DECREASED [None]
  - ALOPECIA [None]
